FAERS Safety Report 17251702 (Version 3)
Quarter: 2020Q1

REPORT INFORMATION
  Report Type: Report from Study
  Country: BR (occurrence: BR)
  Receive Date: 20200109
  Receipt Date: 20200303
  Transmission Date: 20200409
  Serious: Yes (Other)
  Sender: FDA-Public Use
  Company Number: NVSC2020BR001188

PATIENT
  Sex: Male

DRUGS (1)
  1. COSENTYX [Suspect]
     Active Substance: SECUKINUMAB
     Indication: ANKYLOSING SPONDYLITIS
     Dosage: UNK
     Route: 065
     Dates: start: 20181123

REACTIONS (4)
  - Inappropriate schedule of product administration [Unknown]
  - Infection [Recovered/Resolved]
  - Skin laceration [Recovered/Resolved]
  - Pain in extremity [Recovered/Resolved]
